FAERS Safety Report 20741699 (Version 1)
Quarter: 2022Q2

REPORT INFORMATION
  Report Type: Spontaneous
  Country: US (occurrence: None)
  Receive Date: 20220422
  Receipt Date: 20220422
  Transmission Date: 20220721
  Serious: Yes (Other)
  Sender: FDA-Public Use
  Company Number: US-ROCHE-3078419

PATIENT
  Sex: Female

DRUGS (5)
  1. TECENTRIQ [Suspect]
     Active Substance: ATEZOLIZUMAB
     Indication: Small cell lung cancer
     Dosage: IN COMBINATION WITH VP16 AND CARBOPLATIN FOR 4 CYCLES
     Route: 042
     Dates: start: 20200210
  2. TECENTRIQ [Suspect]
     Active Substance: ATEZOLIZUMAB
     Dosage: SINGLE AGENT TECENTRIQ
     Route: 042
     Dates: start: 20200504
  3. VITAMIN B12 [Concomitant]
     Active Substance: CYANOCOBALAMIN
     Route: 065
  4. CARBOPLATIN [Concomitant]
     Active Substance: CARBOPLATIN
  5. RUXIENCE [Concomitant]
     Active Substance: RITUXIMAB-PVVR

REACTIONS (1)
  - Cold type haemolytic anaemia [Not Recovered/Not Resolved]
